FAERS Safety Report 12350109 (Version 3)
Quarter: 2016Q3

REPORT INFORMATION
  Report Type: Spontaneous
  Country: IE (occurrence: IE)
  Receive Date: 20160510
  Receipt Date: 20160819
  Transmission Date: 20161109
  Serious: Yes (Hospitalization, Other)
  Sender: FDA-Public Use
  Company Number: IE-BAUSCH-BL-2016-011071

PATIENT
  Age: 35 Year
  Sex: Male

DRUGS (3)
  1. METRONIDAZOLE. [Suspect]
     Active Substance: METRONIDAZOLE
     Route: 042
     Dates: start: 201310, end: 201311
  2. CEFTRIAXONE. [Concomitant]
     Active Substance: CEFTRIAXONE
     Indication: PRODUCT USED FOR UNKNOWN INDICATION
     Dates: end: 20131104
  3. METRONIDAZOLE. [Suspect]
     Active Substance: METRONIDAZOLE
     Indication: ANTIBIOTIC THERAPY
     Route: 048
     Dates: start: 201310

REACTIONS (2)
  - Cerebellar syndrome [Recovered/Resolved]
  - Toxic encephalopathy [Recovered/Resolved]

NARRATIVE: CASE EVENT DATE: 2013
